FAERS Safety Report 4334440-6 (Version None)
Quarter: 2004Q2

REPORT INFORMATION
  Report Type: 
  Country: None (occurrence: None)
  Receive Date: 20040405
  Receipt Date: 20040324
  Transmission Date: 20050107
  Serious: Yes (Death, Disabling)
  Sender: FDA-Public Use
  Company Number: HQWYE095214AUG03

PATIENT
  Age: 48 Year
  Sex: Male

DRUGS (2)
  1. DIMETAPP [Suspect]
     Dosage: ^RECOMMENDED DOSE FOR 2 DAYS^, ORAL
     Route: 048
     Dates: start: 19890620, end: 19890622
  2. BC (ACETYLSALICYLIC ACID/CAFFEINE/ SALICYLAMIDE, POWDER) [Suspect]
     Dosage: ^FOR SEVERAL YEARS^, ORAL
     Route: 048

REACTIONS (2)
  - ANEURYSM [None]
  - CEREBROVASCULAR ACCIDENT [None]
